FAERS Safety Report 8188312-X (Version None)
Quarter: 2012Q1

REPORT INFORMATION
  Report Type: 
  Country: None (occurrence: None)
  Receive Date: 20120221
  Receipt Date: 20111212
  Transmission Date: 20120608
  Serious: Yes (Hospitalization)
  Sender: FDA-Public Use
  Company Number: PHHY2011US68707

PATIENT
  Age: 62 Year
  Sex: Female

DRUGS (9)
  1. IRON (IRON) [Concomitant]
  2. MULTIVITAMIN [Concomitant]
  3. B12 (CYANOCOBALAMIN) [Concomitant]
  4. PRILOSEC [Concomitant]
  5. CALCIUM CARBONATE [Concomitant]
  6. VITAMIN D [Concomitant]
  7. ASACOL [Concomitant]
  8. POTASSIUM CHLORIDE [Concomitant]
  9. TOBI [Suspect]
     Dosage: 300 MG, BID
     Dates: start: 20110727

REACTIONS (1)
  - DYSPNOEA [None]
